FAERS Safety Report 4265985-5 (Version None)
Quarter: 2004Q1

REPORT INFORMATION
  Report Type: 
  Country: None (occurrence: None)
  Receive Date: 20040106
  Receipt Date: 20031210
  Transmission Date: 20041129
  Serious: Yes (Hospitalization, Other)
  Sender: FDA-Public Use
  Company Number: M2003.6666

PATIENT
  Age: 60 Year
  Sex: Female

DRUGS (6)
  1. RIMACTANE [Suspect]
     Indication: PULMONARY TUBERCULOSIS
     Dosage: 450 MG/DAY
     Dates: start: 20020905, end: 20021003
  2. PYRAZINAMIDE [Concomitant]
  3. REBAMIPIDE [Concomitant]
  4. ALLOPURINOL [Concomitant]
  5. ISONIAZID [Concomitant]
  6. ETHAMBUTOL HCL [Concomitant]

REACTIONS (2)
  - AGRANULOCYTOSIS [None]
  - HEPATITIS [None]
